FAERS Safety Report 5288116-1 (Version None)
Quarter: 2007Q2

REPORT INFORMATION
  Report Type: 
  Country: None (occurrence: None)
  Receive Date: 20070402
  Receipt Date: 20070402
  Transmission Date: 20071010
  Serious: Yes (Other)
  Sender: FDA-Public Use
  Company Number: None

PATIENT
  Age: 54 Year
  Sex: Female
  Weight: 72.5755 kg

DRUGS (1)
  1. ZELNORM [Suspect]
     Indication: IRRITABLE BOWEL SYNDROME
     Dosage: 10 MG TWICE A DAY PO
     Route: 048
     Dates: start: 20030101, end: 20070331

REACTIONS (13)
  - ABASIA [None]
  - ASTHENIA [None]
  - CARDIAC DISORDER [None]
  - CEREBROVASCULAR ACCIDENT [None]
  - CHEST PAIN [None]
  - CONDITION AGGRAVATED [None]
  - GAIT DISTURBANCE [None]
  - HEART RATE INCREASED [None]
  - HEART RATE IRREGULAR [None]
  - MUSCULOSKELETAL PAIN [None]
  - PALPITATIONS [None]
  - PULMONARY HYPERTENSION [None]
  - TRANSIENT ISCHAEMIC ATTACK [None]
